FAERS Safety Report 11148197 (Version 1)
Quarter: 2015Q2

REPORT INFORMATION
  Report Type: Spontaneous
  Country: US (occurrence: None)
  Receive Date: 20150528
  Receipt Date: 20150528
  Transmission Date: 20150821
  Serious: No
  Sender: FDA-Public Use
  Company Number: None

PATIENT
  Age: 37 Year
  Sex: Female
  Weight: 102.51 kg

DRUGS (1)
  1. ESCITALOPRAM 20G [Suspect]
     Active Substance: ESCITALOPRAM OXALATE
     Route: 048
     Dates: start: 20100226, end: 20141201

REACTIONS (1)
  - Depression [None]

NARRATIVE: CASE EVENT DATE: 20141201
